FAERS Safety Report 17551356 (Version 1)
Quarter: 2020Q1

REPORT INFORMATION
  Report Type: Spontaneous
  Country: US (occurrence: US)
  Receive Date: 20200317
  Receipt Date: 20200317
  Transmission Date: 20200409
  Serious: No
  Sender: FDA-Public Use
  Company Number: US-UPSHER-SMITH LABORATORIES, LLC-2019USL00348

PATIENT
  Sex: Female

DRUGS (2)
  1. PREVALITE [Suspect]
     Active Substance: CHOLESTYRAMINE
     Indication: EXPOSURE TO FUNGUS
     Dosage: 4 G, 3X/DAY
     Route: 048
     Dates: start: 201901
  2. PREVALITE [Suspect]
     Active Substance: CHOLESTYRAMINE
     Dosage: 4 G, 2X/DAY
     Route: 048
     Dates: start: 2019

REACTIONS (5)
  - Unevaluable event [Unknown]
  - Alopecia [Unknown]
  - Tooth disorder [Not Recovered/Not Resolved]
  - Constipation [Not Recovered/Not Resolved]
  - Nausea [Unknown]

NARRATIVE: CASE EVENT DATE: 2019
